FAERS Safety Report 21451306 (Version 1)
Quarter: 2022Q4

REPORT INFORMATION
  Report Type: Spontaneous
  Country: FR (occurrence: FR)
  Receive Date: 20221013
  Receipt Date: 20221013
  Transmission Date: 20230112
  Serious: Yes (Hospitalization, Other)
  Sender: FDA-Public Use
  Company Number: FR-BRISTOL-MYERS SQUIBB COMPANY-2022-117855

PATIENT
  Age: 78 Year
  Sex: Male
  Weight: 74 kg

DRUGS (2)
  1. YERVOY [Suspect]
     Active Substance: IPILIMUMAB
     Indication: Malignant melanoma
     Dosage: 5 MG/ML SOLUTION A DILUER POUR PERFUSION
     Route: 065
     Dates: start: 20200623, end: 20200824
  2. OPDIVO [Suspect]
     Active Substance: NIVOLUMAB
     Indication: Malignant melanoma
     Dosage: 10 MG/ML SOLUTION A DILUER POUR PERFUSION
     Route: 065
     Dates: start: 20200623, end: 20200824

REACTIONS (6)
  - Hypophysitis [Not Recovered/Not Resolved]
  - Hypernatraemia [Recovered/Resolved]
  - Myocarditis [Recovered/Resolved]
  - Tubulointerstitial nephritis [Recovered/Resolved]
  - Colitis [Recovered/Resolved]
  - Prescribed overdose [Unknown]

NARRATIVE: CASE EVENT DATE: 20200802
